FAERS Safety Report 8313270 (Version 3)
Quarter: 2019Q2

REPORT INFORMATION
  Report Type: Spontaneous
  Country: US (occurrence: US)
  Receive Date: 20111228
  Receipt Date: 20190530
  Transmission Date: 20190711
  Serious: Yes (Hospitalization, Other)
  Sender: FDA-Public Use
  Company Number: US-ASTELLAS-2011US008704

PATIENT
  Age: 34 Year
  Sex: Female

DRUGS (8)
  1. PROGRAF [Suspect]
     Active Substance: TACROLIMUS\TACROLIMUS ANHYDROUS
     Route: 048
  2. PREDNISONE. [Concomitant]
     Active Substance: PREDNISONE
     Indication: PRODUCT USED FOR UNKNOWN INDICATION
     Dosage: 5 UNK, UNKNOWN FREQ.
     Route: 065
     Dates: end: 20091001
  3. PROGRAF [Suspect]
     Active Substance: TACROLIMUS\TACROLIMUS ANHYDROUS
     Indication: PROPHYLAXIS AGAINST TRANSPLANT REJECTION
     Route: 048
     Dates: start: 200904
  4. PROGRAF [Suspect]
     Active Substance: TACROLIMUS\TACROLIMUS ANHYDROUS
     Route: 048
  5. MYFORTIC [Concomitant]
     Active Substance: MYCOPHENOLATE SODIUM
     Route: 065
     Dates: end: 201003
  6. PROGRAF [Suspect]
     Active Substance: TACROLIMUS\TACROLIMUS ANHYDROUS
     Route: 048
  7. IMURAN [Concomitant]
     Active Substance: AZATHIOPRINE
     Indication: PRODUCT USED FOR UNKNOWN INDICATION
     Route: 065
  8. MYFORTIC [Concomitant]
     Active Substance: MYCOPHENOLATE SODIUM
     Indication: PRODUCT USED FOR UNKNOWN INDICATION
     Dosage: UNK UNK, UNKNOWN FREQ.
     Route: 062
     Dates: end: 201003

REACTIONS (26)
  - Iron deficiency anaemia [Not Recovered/Not Resolved]
  - Escherichia urinary tract infection [Recovered/Resolved]
  - Exposure during pregnancy [Unknown]
  - Treatment noncompliance [Recovered/Resolved]
  - Leukopenia [Recovered/Resolved]
  - Toxicity to various agents [Recovered/Resolved]
  - Cytomegalovirus infection [Recovered/Resolved]
  - Pain [Recovered/Resolved]
  - Hypovolaemia [Recovered/Resolved]
  - Liver function test abnormal [Recovered/Resolved]
  - Seizure [Recovered/Resolved]
  - Renal disorder [Recovered/Resolved]
  - Phosphorus metabolism disorder [Recovered/Resolved]
  - Lymphocele [Recovered/Resolved]
  - Renal impairment [Recovered/Resolved]
  - Streptococcal urinary tract infection [Recovered/Resolved]
  - Pneumonitis [Recovered/Resolved]
  - Urinary tract infection [Not Recovered/Not Resolved]
  - Haemangioma of liver [Unknown]
  - Abdominal mass [Recovered/Resolved]
  - Arteriovenous graft thrombosis [Recovered/Resolved]
  - Hypotension [Recovered/Resolved]
  - Abdominal pain [Recovered/Resolved]
  - Bacterial pyelonephritis [Recovered/Resolved]
  - Immunosuppressant drug level decreased [Not Recovered/Not Resolved]
  - Pyelonephritis [Recovered/Resolved]

NARRATIVE: CASE EVENT DATE: 200904
